FAERS Safety Report 14026854 (Version 1)
Quarter: 2017Q3

REPORT INFORMATION
  Report Type: Spontaneous
  Country: US (occurrence: US)
  Receive Date: 20170929
  Receipt Date: 20170929
  Transmission Date: 20171128
  Serious: No
  Sender: FDA-Public Use
  Company Number: US-ASTRAZENECA-2017SE98457

PATIENT
  Sex: Female

DRUGS (1)
  1. FARXIGA [Suspect]
     Active Substance: DAPAGLIFLOZIN PROPANEDIOL
     Route: 048

REACTIONS (8)
  - Eye haemorrhage [Unknown]
  - Visual impairment [Unknown]
  - Blood glucose abnormal [Unknown]
  - Pain in extremity [Unknown]
  - Glycosylated haemoglobin increased [Unknown]
  - Fat tissue decreased [Unknown]
  - Musculoskeletal discomfort [Unknown]
  - Glucose urine present [Unknown]
